FAERS Safety Report 4507609-5 (Version None)
Quarter: 2004Q4

REPORT INFORMATION
  Report Type: 
  Country: None (occurrence: None)
  Receive Date: 20040928
  Receipt Date: 20040824
  Transmission Date: 20050328
  Serious: Yes (Death)
  Sender: FDA-Public Use
  Company Number: 04P-163-0271370-00

PATIENT
  Age: 80 Year
  Sex: Male
  Weight: 75.7507 kg

DRUGS (9)
  1. HUMIRA [Suspect]
     Indication: RHEUMATOID ARTHRITIS
     Dosage: 40 MG, 1 IN 2 WK, SUBCUTANEOUS
     Route: 058
     Dates: start: 20040423
  2. METHOTREXATE SODIUM [Concomitant]
  3. PARACETAMOL [Concomitant]
  4. CELECOXIB [Concomitant]
  5. FOLIC ACID [Concomitant]
  6. PAROXETINE HYDROCHLORIDE [Concomitant]
  7. VERAPAMIL [Concomitant]
  8. CALCIUM [Concomitant]
  9. MAXZIDE [Concomitant]

REACTIONS (1)
  - DEATH [None]
